FAERS Safety Report 19177772 (Version 2)
Quarter: 2021Q3

REPORT INFORMATION
  Report Type: Other
  Country: CA (occurrence: CA)
  Receive Date: 20210426
  Receipt Date: 20210901
  Transmission Date: 20211014
  Serious: Yes (Other)
  Sender: FDA-Public Use
  Company Number: CA-CELLTRION INC.-2021CA005448

PATIENT

DRUGS (11)
  1. BUTYRIC ACID [Concomitant]
     Active Substance: BUTYRIC ACID
  2. LAMIVUDINE. [Concomitant]
     Active Substance: LAMIVUDINE
  3. METHYLPREDNISOLONE SODIUM SUCCINATE. [Concomitant]
     Active Substance: METHYLPREDNISOLONE SODIUM SUCCINATE
     Indication: PREMEDICATION
     Dosage: 100.0 MILLIGRAM
     Route: 042
  4. VITAMIN C [Concomitant]
     Active Substance: ASCORBIC ACID
  5. BLACK WALNUT (JUGLANS NIGRA POLLEN) [Concomitant]
     Active Substance: JUGLANS NIGRA POLLEN
  6. ACIDOPHILUS [Concomitant]
     Active Substance: LACTOBACILLUS ACIDOPHILUS
  7. CELERY SEED [Concomitant]
     Active Substance: CELERY SEED
  8. DANDELION ROOT [Concomitant]
     Route: 065
  9. TYLENOL [Concomitant]
     Active Substance: ACETAMINOPHEN
     Indication: PREMEDICATION
     Dosage: 650.0 MILLIGRAM
     Route: 048
  10. RITUXIMAB. [Suspect]
     Active Substance: RITUXIMAB
     Indication: ENCEPHALITIS AUTOIMMUNE
     Dosage: 1000.0 MILLIGRAM, 1 EVERY 15 DAYS
     Route: 041
  11. BENADRYL [Concomitant]
     Active Substance: DIPHENHYDRAMINE HYDROCHLORIDE
     Indication: PREMEDICATION
     Dosage: 25.0 MILLIGRAM
     Route: 048

REACTIONS (4)
  - Urticaria [Unknown]
  - Blood pressure systolic increased [Unknown]
  - Off label use [Unknown]
  - Exposure to communicable disease [Unknown]
